FAERS Safety Report 8275081-8 (Version None)
Quarter: 2012Q2

REPORT INFORMATION
  Report Type: 
  Country: None (occurrence: None)
  Receive Date: 20120411
  Receipt Date: 20120407
  Transmission Date: 20120825
  Serious: Yes (Death)
  Sender: FDA-Public Use
  Company Number: US-CUBIST-2012S1000232

PATIENT
  Age: 70 Year

DRUGS (1)
  1. CUBICIN [Suspect]
     Indication: ENDOCARDITIS STAPHYLOCOCCAL
     Route: 042

REACTIONS (2)
  - ENDOCARDITIS STAPHYLOCOCCAL [None]
  - PATHOGEN RESISTANCE [None]
